FAERS Safety Report 4556100-9 (Version None)
Quarter: 2005Q1

REPORT INFORMATION
  Report Type: 
  Country: None (occurrence: None)
  Receive Date: 20050119
  Receipt Date: 20050105
  Transmission Date: 20050727
  Serious: Yes (Hospitalization)
  Sender: FDA-Public Use
  Company Number: IT-AMGEN-UK106113

PATIENT
  Age: 62 Year
  Sex: Female

DRUGS (1)
  1. NEUPOPEG [Suspect]
     Indication: CHEMOTHERAPY
     Route: 058

REACTIONS (2)
  - ACUTE RESPIRATORY DISTRESS SYNDROME [None]
  - STAPHYLOCOCCAL INFECTION [None]
